FAERS Safety Report 8862998 (Version 1)
Quarter: 2012Q4

REPORT INFORMATION
  Report Type: 
  Country: US (occurrence: US)
  Receive Date: 20121026
  Receipt Date: 20121026
  Transmission Date: 20130627
  Serious: No
  Sender: FDA-Public Use
  Company Number: US-ALLERGAN-1115767US

PATIENT
  Age: 82 Year
  Sex: Male

DRUGS (2)
  1. ALPHAGAN P [Suspect]
     Indication: GLAUCOMA
     Dosage: 2 Gtt, q12h
     Route: 047
     Dates: start: 201110
  2. ALPHAGAN P [Suspect]
     Indication: INCREASED INTRAOCULAR PRESSURE

REACTIONS (1)
  - Memory impairment [Not Recovered/Not Resolved]
